FAERS Safety Report 6307938-9 (Version None)
Quarter: 2009Q3

REPORT INFORMATION
  Report Type: 
  Country: None (occurrence: None)
  Receive Date: 20090813
  Receipt Date: 20090807
  Transmission Date: 20100115
  Serious: Yes (Other)
  Sender: FDA-Public Use
  Company Number: US-ELI_LILLY_AND_COMPANY-US200908001809

PATIENT
  Sex: Female

DRUGS (8)
  1. HUMULIN 70/30 [Suspect]
  2. HUMULIN 70/30 [Suspect]
  3. METFORMIN [Concomitant]
  4. ARICEPT [Concomitant]
  5. CELEBREX [Concomitant]
  6. GLYBURIDE [Concomitant]
  7. PREVACID [Concomitant]
  8. VYTORIN [Concomitant]

REACTIONS (4)
  - BLOOD GLUCOSE DECREASED [None]
  - DEMENTIA [None]
  - LEUKAEMIA [None]
  - PARKINSON'S DISEASE [None]
